FAERS Safety Report 12789655 (Version 1)
Quarter: 2016Q3

REPORT INFORMATION
  Report Type: Spontaneous
  Country: JP (occurrence: JP)
  Receive Date: 20160928
  Receipt Date: 20160928
  Transmission Date: 20161109
  Serious: Yes (Death, Hospitalization, Other)
  Sender: FDA-Public Use
  Company Number: JP-MYLANLABS-2016M1040959

PATIENT

DRUGS (12)
  1. ALLOPURINOL. [Suspect]
     Active Substance: ALLOPURINOL
     Indication: HYPERURICAEMIA
     Dosage: 100 MG, BID
     Route: 048
  2. MAGNESIUM OXIDE MYLAN [Suspect]
     Active Substance: MAGNESIUM OXIDE
     Indication: CONSTIPATION
     Dosage: 500 MG, BID
     Route: 048
  3. AMLODIPINE [Suspect]
     Active Substance: AMLODIPINE BESYLATE
     Indication: HYPERTENSION
     Dosage: 5 MG, QD
     Route: 048
  4. LIMAPROST ALFADEX [Suspect]
     Active Substance: LIMAPROST
     Indication: LUMBAR SPINAL STENOSIS
     Dosage: 5 ?G, TID
     Route: 048
  5. WARFARIN POTASSIUM [Suspect]
     Active Substance: WARFARIN POTASSIUM
     Indication: ATRIAL FIBRILLATION
     Dosage: 2 MG, QD
     Route: 048
     Dates: end: 20150924
  6. PREGABALIN. [Suspect]
     Active Substance: PREGABALIN
     Indication: LUMBAR SPINAL STENOSIS
     Dosage: 150 MG, BID
     Route: 048
  7. AZOSEMIDE [Suspect]
     Active Substance: AZOSEMIDE
     Indication: OEDEMA
     Dosage: 15 MG, QD
     Route: 048
  8. CILOSTAZOL MYLAN [Suspect]
     Active Substance: CILOSTAZOL
     Indication: LUMBAR SPINAL STENOSIS
     Dosage: 50 MG, BID
     Route: 048
  9. ELIQUIS [Suspect]
     Active Substance: APIXABAN
     Indication: ISCHAEMIC STROKE
     Dosage: 2.5 MG, BID
     Route: 048
     Dates: start: 20151001
  10. ELIQUIS [Suspect]
     Active Substance: APIXABAN
     Indication: EMBOLISM
  11. MECOBALAMIN [Suspect]
     Active Substance: METHYLCOBALAMIN
     Indication: LUMBAR SPINAL STENOSIS
     Dosage: 500 ?G, TID
     Route: 048
  12. WARFARIN POTASSIUM [Suspect]
     Active Substance: WARFARIN POTASSIUM
     Dosage: 2 MG, QD
     Route: 048
     Dates: start: 20151001

REACTIONS (9)
  - Haemorrhagic diathesis [Fatal]
  - Haematemesis [Fatal]
  - International normalised ratio increased [Recovering/Resolving]
  - Interstitial lung disease [Unknown]
  - Ear haemorrhage [Unknown]
  - Right ventricular failure [Unknown]
  - Cardiac valve disease [Fatal]
  - Heart valve stenosis [Fatal]
  - Cardiac failure congestive [Unknown]

NARRATIVE: CASE EVENT DATE: 20150824
